FAERS Safety Report 21660519 (Version 2)
Quarter: 2022Q4

REPORT INFORMATION
  Report Type: Report from Study
  Country: JP (occurrence: JP)
  Receive Date: 20221130
  Receipt Date: 20221216
  Transmission Date: 20230113
  Serious: Yes (Hospitalization, Other)
  Sender: FDA-Public Use
  Company Number: JP-SERVIER-S22012020

PATIENT
  Age: 71 Year
  Sex: Male

DRUGS (6)
  1. IVABRADINE [Suspect]
     Active Substance: IVABRADINE
     Indication: Cardiac failure chronic
     Dosage: 2.5 MG, TWICE A DAY
     Route: 048
     Dates: start: 20210819
  2. IVABRADINE [Suspect]
     Active Substance: IVABRADINE
     Dosage: 5 MG, TWICE A DAY
     Route: 048
     Dates: start: 20210916, end: 20220807
  3. DAPAGLIFLOZIN [Concomitant]
     Active Substance: DAPAGLIFLOZIN
     Indication: Cardiac failure chronic
     Dosage: UNK
     Route: 048
  4. CARVEDILOL [Concomitant]
     Active Substance: CARVEDILOL
     Indication: Cardiac failure chronic
     Dosage: 10 MG, DAILY
     Route: 048
     Dates: start: 20210719
  5. FUROSEMIDE [Concomitant]
     Active Substance: FUROSEMIDE
     Indication: Cardiac failure chronic
     Dosage: UNK
     Route: 048
  6. SPIRONOLACTONE [Concomitant]
     Active Substance: SPIRONOLACTONE
     Indication: Cardiac failure chronic
     Dosage: UNK
     Route: 048

REACTIONS (3)
  - Renal impairment [Recovered/Resolved]
  - Gout [Recovered/Resolved]
  - Dehydration [Recovered/Resolved]

NARRATIVE: CASE EVENT DATE: 20220716
